FAERS Safety Report 5448026-3 (Version None)
Quarter: 2007Q3

REPORT INFORMATION
  Report Type: 
  Country: None (occurrence: None)
  Receive Date: 20070910
  Receipt Date: 20070905
  Transmission Date: 20080115
  Serious: Yes (Hospitalization)
  Sender: FDA-Public Use
  Company Number: DE-ABBOTT-07P-062-0416172-00

PATIENT
  Sex: Male

DRUGS (5)
  1. KALETRA [Suspect]
     Indication: HIV INFECTION
     Route: 048
  2. ZIDOVUDINE [Concomitant]
     Indication: HIV INFECTION
     Route: 048
     Dates: start: 20070807
  3. TENOFOVIR DISOPROXIL FUMARATE [Concomitant]
     Indication: HIV INFECTION
     Dates: start: 20070807
  4. LAXOFALK [Concomitant]
     Indication: HEPATITIS
     Dates: start: 20070807
  5. MORPHINE [Concomitant]
     Indication: ANALGESIC THERAPY
     Dates: start: 20070807

REACTIONS (3)
  - HAEMOPTYSIS [None]
  - HEPATITIS C [None]
  - LUNG INFILTRATION [None]
